FAERS Safety Report 6116571-3 (Version None)
Quarter: 2009Q1

REPORT INFORMATION
  Report Type: 
  Country: None (occurrence: None)
  Receive Date: 20090314
  Receipt Date: 20081218
  Transmission Date: 20090719
  Serious: No
  Sender: FDA-Public Use
  Company Number: US-ABBOTT-08P-163-0493705-00

PATIENT
  Sex: Male
  Weight: 83.082 kg

DRUGS (4)
  1. HUMIRA [Suspect]
     Indication: CROHN'S DISEASE
     Route: 058
     Dates: start: 20070903, end: 20080901
  2. HUMIRA [Suspect]
     Route: 058
     Dates: start: 20080901
  3. ENTOCORT EC [Concomitant]
     Indication: CROHN'S DISEASE
     Route: 048
  4. LIALDA [Concomitant]
     Indication: CROHN'S DISEASE
     Route: 048
     Dates: start: 20070101

REACTIONS (2)
  - DRUG DELIVERY SYSTEM MALFUNCTION [None]
  - INCORRECT DOSE ADMINISTERED [None]
